FAERS Safety Report 5361604-5 (Version None)
Quarter: 2007Q2

REPORT INFORMATION
  Report Type: 
  Country: None (occurrence: None)
  Receive Date: 20070619
  Receipt Date: 20070608
  Transmission Date: 20071010
  Serious: Yes (Hospitalization)
  Sender: FDA-Public Use
  Company Number: JP-NOVOPROD-264037

PATIENT
  Sex: Male
  Weight: 56 kg

DRUGS (5)
  1. NOVOLIN R [Suspect]
     Indication: DIABETES MELLITUS INSULIN-DEPENDENT
     Route: 058
     Dates: start: 20030601
  2. NOVOLIN N [Suspect]
     Indication: DIABETES MELLITUS INSULIN-DEPENDENT
     Route: 058
     Dates: start: 20030601
  3. NOVOLIN 30R CHU [Suspect]
     Indication: DIABETES MELLITUS INSULIN-DEPENDENT
     Dosage: UNK, BID
     Dates: start: 20040115, end: 20040601
  4. MEVALOTIN [Concomitant]
     Dosage: 10 MG, QD
     Route: 048
     Dates: start: 20040901
  5. LIPITOR [Concomitant]
     Dosage: 5 MG, QD
     Route: 048
     Dates: start: 20050101

REACTIONS (3)
  - ANTI-GAD ANTIBODY [None]
  - ANTI-INSULIN ANTIBODY [None]
  - BLOOD GLUCOSE FLUCTUATION [None]
